FAERS Safety Report 5113772-8 (Version None)
Quarter: 2006Q3

REPORT INFORMATION
  Report Type: 
  Country: None (occurrence: None)
  Receive Date: 20060925
  Receipt Date: 20060912
  Transmission Date: 20061208
  Serious: Yes (Other)
  Sender: FDA-Public Use
  Company Number: US-AVENTIS-200617773US

PATIENT
  Sex: Male
  Weight: 90.9 kg

DRUGS (11)
  1. LANTUS [Suspect]
     Indication: DIABETES MELLITUS NON-INSULIN-DEPENDENT
     Dosage: DOSE: 30 TO 40
  2. APIDRA [Suspect]
     Indication: DIABETES MELLITUS NON-INSULIN-DEPENDENT
     Dosage: DOSE: SLIDING SCALE UP TO 30 UNITS 3 TIMES A DAY
  3. OPTICLIK (INSULIN INJECTION PEN) [Suspect]
     Indication: DIABETES MELLITUS NON-INSULIN-DEPENDENT
     Dates: start: 20060911
  4. OPTICLIK (INSULIN INJECTION PEN) [Suspect]
     Dates: start: 20060907
  5. LISINOPRIL [Concomitant]
     Dosage: DOSE: UNK
  6. ZETIA                                   /USA/ [Concomitant]
     Dosage: DOSE: UNK
  7. TOPROL-XL [Concomitant]
     Dosage: DOSE: UNK
  8. TRENTAL [Concomitant]
     Dosage: DOSE: UNK
  9. ASPIRIN [Concomitant]
  10. PEGASYS [Concomitant]
     Dosage: DOSE: UNK
  11. SSRI [Concomitant]
     Dosage: DOSE: UNK

REACTIONS (12)
  - BLOOD GLUCOSE DECREASED [None]
  - BLOOD GLUCOSE INCREASED [None]
  - DRUG ADMINISTRATION ERROR [None]
  - EYE HAEMORRHAGE [None]
  - HYPERTENSION [None]
  - HYPOAESTHESIA [None]
  - HYPOTENSION [None]
  - MACULAR OEDEMA [None]
  - MEDICAL DEVICE COMPLICATION [None]
  - NO ADVERSE DRUG EFFECT [None]
  - PHARMACEUTICAL PRODUCT COMPLAINT [None]
  - VISUAL DISTURBANCE [None]
